FAERS Safety Report 15538146 (Version 3)
Quarter: 2018Q4

REPORT INFORMATION
  Report Type: Report from Study
  Country: US (occurrence: US)
  Receive Date: 20181022
  Receipt Date: 20181106
  Transmission Date: 20190205
  Serious: Yes (Death, Hospitalization, Other)
  Sender: FDA-Public Use
  Company Number: US-GILEAD-2018-0368070

PATIENT
  Age: 83 Year
  Sex: Male

DRUGS (3)
  1. IDELALISIB [Interacting]
     Active Substance: IDELALISIB
     Indication: LEUKAEMIA
  2. TAMSULOSIN [Interacting]
     Active Substance: TAMSULOSIN
     Indication: PROSTATIC DISORDER
     Dosage: NOT PROVIDED, TABLET BY MOUTH
     Route: 048
  3. IDELALISIB [Suspect]
     Active Substance: IDELALISIB
     Indication: B-CELL LYMPHOMA
     Dosage: 100 MG, BID
     Route: 048
     Dates: start: 20181006, end: 20181019

REACTIONS (14)
  - Incoherent [Recovering/Resolving]
  - Speech disorder [Recovering/Resolving]
  - Somnolence [Not Recovered/Not Resolved]
  - Dehydration [Recovering/Resolving]
  - Oropharyngeal pain [Not Recovered/Not Resolved]
  - Eating disorder [Not Recovered/Not Resolved]
  - Mobility decreased [Recovering/Resolving]
  - Asthenia [Recovering/Resolving]
  - Dehydration [Recovering/Resolving]
  - Neoplasm malignant [Fatal]
  - Lymphadenopathy [Not Recovered/Not Resolved]
  - Haemoptysis [Unknown]
  - Dysarthria [Not Recovered/Not Resolved]
  - Drug interaction [Not Recovered/Not Resolved]

NARRATIVE: CASE EVENT DATE: 201810
